FAERS Safety Report 9508006 (Version 1)
Quarter: 2013Q3

REPORT INFORMATION
  Report Type: Spontaneous
  Country: US (occurrence: None)
  Receive Date: 20130906
  Receipt Date: 20130906
  Transmission Date: 20140515
  Serious: Yes (Death, Hospitalization)
  Sender: FDA-Public Use
  Company Number: None

PATIENT
  Age: 5 Year
  Sex: Male
  Weight: 14.24 kg

DRUGS (6)
  1. CYTARABINE [Suspect]
  2. VINCRISTINE SULFATE [Suspect]
  3. DEXAMETHASONE [Suspect]
  4. METHOTREXATE [Suspect]
  5. PEDIATRIC MULTIVITAMIN (POLY-VI-SOL) [Concomitant]
  6. TRIMETHOPRIM 40 MG-SULFAMETHOXAZOLE 200 MG/5 ML (BACTRIM, SEPTRA) 200-40 MG/5 ML [Concomitant]

REACTIONS (2)
  - Diarrhoea [None]
  - Vomiting [None]
